FAERS Safety Report 4430928-8 (Version None)
Quarter: 2004Q3

REPORT INFORMATION
  Report Type: 
  Country: None (occurrence: None)
  Receive Date: 20040823
  Receipt Date: 20040819
  Transmission Date: 20050211
  Serious: Yes (Life-Threatening, Hospitalization, Disabling)
  Sender: FDA-Public Use
  Company Number: US-MERCK-0408USA01631

PATIENT
  Sex: Male

DRUGS (1)
  1. COZAAR [Suspect]
     Route: 048

REACTIONS (3)
  - EYE SWELLING [None]
  - OROPHARYNGEAL SWELLING [None]
  - SWELLING FACE [None]
